FAERS Safety Report 9054530 (Version 1)
Quarter: 2013Q1

REPORT INFORMATION
  Report Type: Spontaneous
  Country: CL (occurrence: CL)
  Receive Date: 20130208
  Receipt Date: 20130208
  Transmission Date: 20140127
  Serious: Yes (Other)
  Sender: FDA-Public Use
  Company Number: CL-PFIZER INC-2013052857

PATIENT
  Sex: Male

DRUGS (4)
  1. LIPITOR [Suspect]
     Indication: HYPERCHOLESTEROLAEMIA
     Dosage: 20 MG, 1X/DAY
     Route: 048
     Dates: start: 20130126
  2. LIPITOR [Suspect]
     Indication: HYPERTRIGLYCERIDAEMIA
  3. LOPID [Suspect]
     Indication: HYPERCHOLESTEROLAEMIA
     Dosage: 900 MG, 1X/DAY
     Route: 048
     Dates: start: 20130126
  4. LOPID [Suspect]
     Indication: HYPERTRIGLYCERIDAEMIA

REACTIONS (2)
  - Tachycardia [Unknown]
  - Stress [Unknown]
